FAERS Safety Report 7028985-8 (Version None)
Quarter: 2010Q4

REPORT INFORMATION
  Report Type: 
  Country: None (occurrence: None)
  Receive Date: 20101005
  Receipt Date: 20101001
  Transmission Date: 20110411
  Serious: Yes (Death, Hospitalization)
  Sender: FDA-Public Use
  Company Number: A0836287A

PATIENT
  Age: 51 Year
  Sex: Male
  Weight: 138.6 kg

DRUGS (6)
  1. AVANDIA [Suspect]
     Dosage: 8MG PER DAY
     Route: 048
     Dates: start: 20040201, end: 20070605
  2. LANTUS [Concomitant]
  3. GLUCOPHAGE XR [Concomitant]
  4. AMARYL [Concomitant]
  5. NORVASC [Concomitant]
  6. VASOTEC [Concomitant]

REACTIONS (6)
  - CARDIAC FAILURE CONGESTIVE [None]
  - CARDIOMYOPATHY [None]
  - CORONARY ARTERY DISEASE [None]
  - DEATH [None]
  - FLUID OVERLOAD [None]
  - HYPERCHOLESTEROLAEMIA [None]
